FAERS Safety Report 20649234 (Version 1)
Quarter: 2022Q1

REPORT INFORMATION
  Report Type: Spontaneous
  Country: US (occurrence: US)
  Receive Date: 20220329
  Receipt Date: 20220329
  Transmission Date: 20220423
  Serious: No
  Sender: FDA-Public Use
  Company Number: US-BAYER-2022A042072

PATIENT
  Age: 77 Year
  Sex: Female

DRUGS (2)
  1. ESTRADIOL [Suspect]
     Active Substance: ESTRADIOL
     Dosage: 0.037 MG
     Route: 062
  2. ESTRADIOL [Concomitant]
     Active Substance: ESTRADIOL
     Route: 062

REACTIONS (1)
  - Application site rash [None]
